FAERS Safety Report 24818284 (Version 1)
Quarter: 2025Q1

REPORT INFORMATION
  Report Type: Spontaneous
  Country: US (occurrence: US)
  Receive Date: 20250108
  Receipt Date: 20250108
  Transmission Date: 20250409
  Serious: Yes (Other)
  Sender: AUROBINDO
  Company Number: US-AUROBINDO-AUR-APL-2024-064348

PATIENT
  Age: 33 Year
  Sex: Male

DRUGS (9)
  1. AMBRISENTAN [Suspect]
     Active Substance: AMBRISENTAN
     Indication: Heritable pulmonary arterial hypertension
     Route: 065
     Dates: start: 2017
  2. AMBRISENTAN [Suspect]
     Active Substance: AMBRISENTAN
     Route: 065
     Dates: start: 2021
  3. MACITENTAN [Suspect]
     Active Substance: MACITENTAN
     Indication: Heritable pulmonary arterial hypertension
     Route: 065
     Dates: start: 2013
  4. TADALAFIL [Suspect]
     Active Substance: TADALAFIL
     Indication: Heritable pulmonary arterial hypertension
     Route: 065
     Dates: start: 2013
  5. TADALAFIL [Suspect]
     Active Substance: TADALAFIL
     Route: 065
     Dates: start: 2017
  6. TADALAFIL [Suspect]
     Active Substance: TADALAFIL
     Route: 065
     Dates: start: 2021
  7. SELEXIPAG [Suspect]
     Active Substance: SELEXIPAG
     Indication: Heritable pulmonary arterial hypertension
     Route: 065
     Dates: start: 2017
  8. SITAXENTAN [Suspect]
     Active Substance: SITAXENTAN
     Indication: Heritable pulmonary arterial hypertension
     Route: 065
     Dates: start: 2005
  9. TREPROSTINIL [Suspect]
     Active Substance: TREPROSTINIL
     Indication: Heritable pulmonary arterial hypertension
     Route: 042
     Dates: start: 2021

REACTIONS (1)
  - Drug ineffective [Unknown]
